FAERS Safety Report 19723817 (Version 1)
Quarter: 2021Q3

REPORT INFORMATION
  Report Type: Spontaneous
  Country: DE (occurrence: DE)
  Receive Date: 20210819
  Receipt Date: 20210819
  Transmission Date: 20211014
  Serious: Yes (Hospitalization)
  Sender: FDA-Public Use
  Company Number: DE-TEVA-2021-DE-1942468

PATIENT
  Age: 67 Year
  Sex: Male

DRUGS (4)
  1. SERTRALIN [Suspect]
     Active Substance: SERTRALINE HYDROCHLORIDE
     Dosage: 100 MILLIGRAM DAILY;  1?0?0?0
     Route: 048
  2. MELPERON [Suspect]
     Active Substance: MELPERONE
     Dosage: 50 MILLIGRAM DAILY; 1?0?0?0
     Route: 048
  3. QUETIAPIN [Suspect]
     Active Substance: QUETIAPINE
     Dosage: 50 MILLIGRAM DAILY; DISCONTINUED AT THE END OF JUNE
     Route: 048
  4. VENLAFAXIN [Suspect]
     Active Substance: VENLAFAXINE HYDROCHLORIDE
     Dosage: 150 MILLIGRAM DAILY; DISCONTINUED IN LATE JUNE
     Route: 048

REACTIONS (2)
  - Restlessness [Unknown]
  - Anxiety [Unknown]
